FAERS Safety Report 24234475 (Version 3)
Quarter: 2024Q4

REPORT INFORMATION
  Report Type: Spontaneous
  Country: IN (occurrence: IN)
  Receive Date: 20240821
  Receipt Date: 20241007
  Transmission Date: 20250114
  Serious: Yes (Other)
  Sender: PFIZER
  Company Number: IN-PFIZER INC-PV202400108440

PATIENT
  Age: 80 Year
  Sex: Male
  Weight: 53 kg

DRUGS (3)
  1. CRIZOTINIB [Suspect]
     Active Substance: CRIZOTINIB
     Indication: Lung neoplasm malignant
     Dosage: 250 MG, 2X/DAY
     Route: 048
     Dates: start: 202402
  2. PREDNISOLONE [Concomitant]
     Active Substance: PREDNISOLONE
     Indication: Glaucoma
     Dosage: 1 TABLET DAILY FOR 7 DAYS
  3. PREDNISOLONE [Concomitant]
     Active Substance: PREDNISOLONE
     Indication: Cataract

REACTIONS (4)
  - Cataract [Recovered/Resolved]
  - Glaucoma [Recovered/Resolved]
  - Pleural effusion [Unknown]
  - Post procedural complication [Recovered/Resolved]
